FAERS Safety Report 4963028-9 (Version None)
Quarter: 2006Q2

REPORT INFORMATION
  Report Type: 
  Country: None (occurrence: None)
  Receive Date: 20060404
  Receipt Date: 20060315
  Transmission Date: 20061013
  Serious: Yes (Hospitalization)
  Sender: FDA-Public Use
  Company Number: B0416795A

PATIENT
  Age: 36 Year
  Sex: Female

DRUGS (4)
  1. ZIDOVUDINE [Suspect]
     Indication: HIV INFECTION
     Dosage: 300 MG / TWICE PER DAY /
  2. LAMIVUDINE [Concomitant]
     Indication: HIV INFECTION
     Dosage: 150 MG / TWICE PER DAY /
  3. NELFINAVIR MESYLATE (NELFINAVIR MESYLATE) [Suspect]
     Indication: HIV INFECTION
     Dosage: 1250 MG / TWICE PER DAY /
  4. DAPSONE [Concomitant]

REACTIONS (8)
  - ASTHENIA [None]
  - DEPRESSION [None]
  - HEPATITIS ACUTE [None]
  - LYMPHADENOPATHY [None]
  - MYALGIA [None]
  - PHARYNGOLARYNGEAL PAIN [None]
  - RASH ERYTHEMATOUS [None]
  - RETROVIRAL INFECTION [None]
